FAERS Safety Report 20085009 (Version 1)
Quarter: 2021Q4

REPORT INFORMATION
  Report Type: Report from Study
  Country: CA (occurrence: CA)
  Receive Date: 20211118
  Receipt Date: 20211118
  Transmission Date: 20220303
  Serious: Yes (Death)
  Sender: FDA-Public Use
  Company Number: CA-Taiho Oncology Inc-EU-2021-03621

PATIENT
  Age: 31 Year
  Sex: Male
  Weight: 84.8 kg

DRUGS (1)
  1. LONSURF [Suspect]
     Active Substance: TIPIRACIL HYDROCHLORIDE\TRIFLURIDINE
     Indication: Colorectal cancer metastatic
     Dosage: DOSE, FREQUENCY AND UNKNOWN CYCLE
     Route: 048
     Dates: start: 20210929

REACTIONS (1)
  - Death [Fatal]

NARRATIVE: CASE EVENT DATE: 20211102
